FAERS Safety Report 7298298-8 (Version None)
Quarter: 2011Q1

REPORT INFORMATION
  Report Type: 
  Country: None (occurrence: None)
  Receive Date: 20110217
  Receipt Date: 20100315
  Transmission Date: 20110831
  Serious: No
  Sender: FDA-Public Use
  Company Number: US-PFIZER INC-2010033329

PATIENT
  Sex: Female
  Weight: 68 kg

DRUGS (3)
  1. COMBIGAN [Concomitant]
     Indication: GLAUCOMA
     Dosage: UNK
  2. AZOPT [Concomitant]
     Indication: GLAUCOMA
     Dosage: UNK
  3. XALATAN [Suspect]
     Indication: GLAUCOMA
     Dosage: UNK
     Dates: end: 20100301

REACTIONS (2)
  - OCULAR HYPERAEMIA [None]
  - EYE SWELLING [None]
